FAERS Safety Report 7041463-5 (Version None)
Quarter: 2010Q4

REPORT INFORMATION
  Report Type: 
  Country: None (occurrence: None)
  Receive Date: 20101013
  Receipt Date: 20100527
  Transmission Date: 20110411
  Serious: No
  Sender: FDA-Public Use
  Company Number: US-ASTRAZENECA-2009SE06111

PATIENT
  Sex: Female
  Weight: 70.3 kg

DRUGS (14)
  1. SYMBICORT [Suspect]
     Indication: ASTHMA
     Dosage: 160/4.5 MCG (2 PUFFS TWICE A DAY)
     Route: 055
  2. SYMBICORT [Suspect]
     Dosage: 160/4.5 MCG (2 PUFFS TWICE A DAY)
     Route: 055
  3. COMBIVENT [Concomitant]
  4. IPRATROPIUM BROMIDE [Concomitant]
  5. ALBUTEROL [Concomitant]
  6. BUMETANIDE [Concomitant]
  7. ISOSORBIDE [Concomitant]
  8. SPIRONOLACTONE [Concomitant]
  9. COZAAR [Concomitant]
  10. LIPITOR [Concomitant]
  11. PLAVIX [Concomitant]
  12. POTASSIUM CHLORIDE [Concomitant]
  13. NIFEREX [Concomitant]
  14. CODEINE [Concomitant]

REACTIONS (4)
  - ASTHMA [None]
  - DRUG DOSE OMISSION [None]
  - DYSPNOEA [None]
  - MALAISE [None]
